FAERS Safety Report 17546091 (Version 1)
Quarter: 2020Q1

REPORT INFORMATION
  Report Type: Spontaneous
  Country: PL (occurrence: PL)
  Receive Date: 20200316
  Receipt Date: 20200316
  Transmission Date: 20200409
  Serious: Yes (Other)
  Sender: FDA-Public Use
  Company Number: PL-MYLANLABS-2020M1026853

PATIENT
  Sex: Female

DRUGS (2)
  1. KISQALI [Suspect]
     Active Substance: RIBOCICLIB
     Indication: BREAST CANCER
     Dosage: UNK, A DAY FOR 21 DAYS, THEN 7 DAYS OF BREAK
     Route: 065
  2. FULVESTRANT. [Suspect]
     Active Substance: FULVESTRANT
     Indication: BREAST CANCER
     Dosage: 500 MG(EVERY 28 DAYS (+DAY 14))
     Route: 058

REACTIONS (4)
  - Breast cancer [Unknown]
  - Leukopenia [Unknown]
  - Malignant neoplasm progression [Unknown]
  - Neutropenia [Unknown]
